FAERS Safety Report 4691938-9 (Version None)
Quarter: 2005Q2

REPORT INFORMATION
  Report Type: 
  Country: None (occurrence: None)
  Receive Date: 20050614
  Receipt Date: 20050603
  Transmission Date: 20051028
  Serious: Yes (Other)
  Sender: FDA-Public Use
  Company Number: 8010812

PATIENT
  Age: 5 Year

DRUGS (1)
  1. KEPPRA [Suspect]
     Dosage: /D PO
     Route: 048
     Dates: end: 20050501

REACTIONS (1)
  - ANAPHYLACTIC REACTION [None]
